FAERS Safety Report 17679526 (Version 1)
Quarter: 2020Q2

REPORT INFORMATION
  Report Type: Spontaneous
  Country: JP (occurrence: JP)
  Receive Date: 20200417
  Receipt Date: 20200417
  Transmission Date: 20200714
  Serious: Yes (Hospitalization, Other)
  Sender: FDA-Public Use
  Company Number: JP-MYLANLABS-2020M1036965

PATIENT
  Age: 73 Year
  Sex: Male

DRUGS (6)
  1. LANSOPRAZOLE. [Concomitant]
     Active Substance: LANSOPRAZOLE
     Indication: PRODUCT USED FOR UNKNOWN INDICATION
     Route: 065
  2. PREDNISOLONE. [Suspect]
     Active Substance: PREDNISOLONE
     Dosage: 12 MILLIGRAM, QD
     Route: 048
  3. AZATHIOPRINE. [Concomitant]
     Active Substance: AZATHIOPRINE
     Indication: GRANULOMATOSIS WITH POLYANGIITIS
     Dosage: 50 MILLIGRAM, QD
     Route: 065
  4. METHYLPREDNISOLONE. [Suspect]
     Active Substance: METHYLPREDNISOLONE
     Indication: GRANULOMATOSIS WITH POLYANGIITIS
     Dosage: PULSE THERAPY
     Route: 042
  5. CYCLOPHOSPHAMIDE. [Concomitant]
     Active Substance: CYCLOPHOSPHAMIDE
     Indication: GRANULOMATOSIS WITH POLYANGIITIS
     Dosage: 1000 MILLIGRAM, MONTHLY, HIGH-DOSE
     Route: 065
  6. PREDNISOLONE. [Suspect]
     Active Substance: PREDNISOLONE
     Indication: GRANULOMATOSIS WITH POLYANGIITIS
     Dosage: 50 MILLIGRAM, QD
     Route: 048

REACTIONS (2)
  - Kaposi^s sarcoma [Recovering/Resolving]
  - Anaemia [Recovering/Resolving]
